FAERS Safety Report 8571746-9 (Version None)
Quarter: 2012Q3

REPORT INFORMATION
  Report Type: 
  Country: None (occurrence: None)
  Receive Date: 20120806
  Receipt Date: 20120803
  Transmission Date: 20120928
  Serious: Yes (Death)
  Sender: FDA-Public Use
  Company Number: PHHY2012BR045896

PATIENT
  Sex: Female

DRUGS (3)
  1. LABIRIN [Concomitant]
     Indication: TINNITUS
     Dosage: 3 DF, DAILY
     Route: 048
  2. ENALAPRIL MALEATE [Concomitant]
     Indication: BLOOD PRESSURE
     Dosage: 1 DF, DAILY
     Route: 048
  3. EXELON [Suspect]
     Indication: DEMENTIA ALZHEIMER'S TYPE
     Dosage: 18MG/10CM2, AT 1 PATCH DAILY
     Route: 062

REACTIONS (2)
  - MULTI-ORGAN FAILURE [None]
  - RENAL DISORDER [None]
